FAERS Safety Report 9144557 (Version 1)
Quarter: 2013Q1

REPORT INFORMATION
  Report Type: Spontaneous
  Country: US (occurrence: US)
  Receive Date: 20130306
  Receipt Date: 20130306
  Transmission Date: 20140127
  Serious: Yes (Other)
  Sender: FDA-Public Use
  Company Number: CHPA2013US004023

PATIENT
  Age: 51 Year
  Sex: Female

DRUGS (1)
  1. VOLTAREN GEL [Suspect]
     Indication: ARTHRALGIA
     Dosage: UNK, UNK
     Route: 061

REACTIONS (7)
  - Systemic lupus erythematosus [Unknown]
  - Arthralgia [Unknown]
  - Pain in extremity [Unknown]
  - Local swelling [Unknown]
  - Therapeutic response unexpected [Unknown]
  - Off label use [Unknown]
  - Drug administered at inappropriate site [Unknown]
